FAERS Safety Report 7483504-7 (Version None)
Quarter: 2011Q2

REPORT INFORMATION
  Report Type: 
  Country: None (occurrence: None)
  Receive Date: 20110517
  Receipt Date: 20110511
  Transmission Date: 20111010
  Serious: Yes (Other)
  Sender: FDA-Public Use
  Company Number: US-GENZYME-CAMP-1001617

PATIENT
  Sex: Female
  Weight: 104.31 kg

DRUGS (5)
  1. CAMPATH [Suspect]
     Indication: MULTIPLE SCLEROSIS
     Route: 065
  2. METHYLPEDNISOLONE SODIUM SUCCINATE [Concomitant]
     Indication: MULTIPLE SCLEROSIS
     Dosage: 1 G, QDX3
     Route: 042
     Dates: start: 20071105, end: 20071107
  3. METHYLPEDNISOLONE SODIUM SUCCINATE [Concomitant]
     Dosage: 1 G, QDX3
     Route: 042
     Dates: start: 20081110, end: 20081112
  4. CAMPATH [Suspect]
     Dosage: 12 MG, QDX3
     Route: 042
     Dates: start: 20081110, end: 20081112
  5. CAMPATH [Suspect]
     Dosage: 12 MG, QDX5
     Route: 042
     Dates: start: 20071105, end: 20071109

REACTIONS (1)
  - ABORTION SPONTANEOUS [None]
